FAERS Safety Report 23558270 (Version 1)
Quarter: 2024Q1

REPORT INFORMATION
  Report Type: Spontaneous
  Country: FR (occurrence: FR)
  Receive Date: 20240223
  Receipt Date: 20240223
  Transmission Date: 20240409
  Serious: Yes (Hospitalization)
  Sender: FDA-Public Use
  Company Number: None

PATIENT
  Age: 77 Year
  Sex: Male
  Weight: 170 kg

DRUGS (14)
  1. FUROSEMIDE [Suspect]
     Active Substance: FUROSEMIDE
     Indication: Cardiac failure
     Dates: start: 20231014
  2. ALTHIAZIDE\SPIRONOLACTONE [Suspect]
     Active Substance: ALTHIAZIDE\SPIRONOLACTONE
     Indication: Product used for unknown indication
  3. SACUBITRIL\VALSARTAN [Suspect]
     Active Substance: SACUBITRIL\VALSARTAN
     Indication: Cardiac failure
     Dosage: 24 MG/26 MG, 24MG/24MG STAGE 1
     Dates: start: 20231014, end: 20231023
  4. DAPAGLIFLOZIN [Concomitant]
     Active Substance: DAPAGLIFLOZIN
  5. BISOPROLOL [Concomitant]
     Active Substance: BISOPROLOL\BISOPROLOL FUMARATE
  6. URSODIOL [Concomitant]
     Active Substance: URSODIOL
  7. AUGMENTIN [Concomitant]
     Active Substance: AMOXICILLIN\CLAVULANATE POTASSIUM
  8. VITAMINS [Concomitant]
     Active Substance: VITAMINS
  9. MIRTAZAPINE [Concomitant]
     Active Substance: MIRTAZAPINE
     Dosage: 15 MG
  10. TAMSULOSIN [Concomitant]
     Active Substance: TAMSULOSIN
  11. PREGABALIN [Concomitant]
     Active Substance: PREGABALIN
  12. AMITRIPTYLINE HYDROCHLORIDE [Concomitant]
     Active Substance: AMITRIPTYLINE HYDROCHLORIDE
  13. SIMVASTATIN [Concomitant]
     Active Substance: SIMVASTATIN
  14. ELIQUIS [Concomitant]
     Active Substance: APIXABAN
     Dosage: 2.5 MG

REACTIONS (2)
  - Hypoglycaemia [Not Recovered/Not Resolved]
  - Hypotension [Recovered/Resolved]

NARRATIVE: CASE EVENT DATE: 20231020
